FAERS Safety Report 9720297 (Version 2)
Quarter: 2014Q1

REPORT INFORMATION
  Report Type: Spontaneous
  Country: US (occurrence: US)
  Receive Date: 20131129
  Receipt Date: 20140211
  Transmission Date: 20141002
  Serious: No
  Sender: FDA-Public Use
  Company Number: US-BIOGENIDEC-2013BI112760

PATIENT
  Age: 70 Year
  Sex: Female

DRUGS (3)
  1. AVONEX [Suspect]
     Indication: MULTIPLE SCLEROSIS
     Route: 030
     Dates: start: 20061129, end: 20131105
  2. AVONEX [Suspect]
     Indication: MULTIPLE SCLEROSIS
     Route: 030
     Dates: start: 201311, end: 20140204
  3. AVONEX [Suspect]
     Indication: MULTIPLE SCLEROSIS
     Route: 030

REACTIONS (14)
  - Fall [Recovered/Resolved]
  - Face injury [Unknown]
  - Haemorrhage [Recovered/Resolved]
  - Local swelling [Unknown]
  - Contusion [Unknown]
  - Facial bones fracture [Unknown]
  - Epistaxis [Recovered/Resolved]
  - Joint injury [Not Recovered/Not Resolved]
  - Wrong technique in drug usage process [Unknown]
  - Eye contusion [Not Recovered/Not Resolved]
  - Dizziness [Unknown]
  - Pain [Not Recovered/Not Resolved]
  - Muscular weakness [Not Recovered/Not Resolved]
  - Injection site reaction [Unknown]
